FAERS Safety Report 16473669 (Version 2)
Quarter: 2019Q3

REPORT INFORMATION
  Report Type: Spontaneous
  Country: JP (occurrence: JP)
  Receive Date: 20190625
  Receipt Date: 20190723
  Transmission Date: 20191004
  Serious: Yes (Hospitalization, Other)
  Sender: FDA-Public Use
  Company Number: JP-BRISTOL-MYERS SQUIBB COMPANY-BMS-2019-046884

PATIENT
  Age: 50 Year
  Sex: Male

DRUGS (11)
  1. THYRADIN S [Suspect]
     Active Substance: LEVOTHYROXINE SODIUM
     Indication: PRODUCT USED FOR UNKNOWN INDICATION
     Dosage: 100 MICROGRAM/DAY
     Route: 048
  2. HUSTAZOL [CLOPERASTINE FENDIZOATE] [Concomitant]
     Active Substance: CLOPERASTINE FENDIZOATE
     Indication: PRODUCT USED FOR UNKNOWN INDICATION
     Dosage: 10 MILLIGRAM, Q8H
     Route: 048
  3. THYRADIN S [Suspect]
     Active Substance: LEVOTHYROXINE SODIUM
     Indication: HYPOTHYROIDISM
     Dosage: 100 MICROGRAM/DAY
     Route: 048
  4. CORTRIL [Suspect]
     Active Substance: HYDROCORTISONE
     Indication: HYPOTHYROIDISM
     Route: 065
  5. MUCODYNE [Concomitant]
     Active Substance: CARBOCYSTEINE
     Indication: PRODUCT USED FOR UNKNOWN INDICATION
     Dosage: 500 MILLIGRAM, Q8H
     Route: 048
  6. MUCOSAL [AMBROXOL HYDROCHLORIDE] [Concomitant]
     Indication: PRODUCT USED FOR UNKNOWN INDICATION
     Dosage: 15 MILLIGRAM, Q8H
     Route: 048
  7. THYRADIN S [Suspect]
     Active Substance: LEVOTHYROXINE SODIUM
     Indication: ADRENAL INSUFFICIENCY
     Dosage: 50 MICROGRAM/DAY
     Route: 048
  8. OPDIVO [Suspect]
     Active Substance: NIVOLUMAB
     Indication: NON-SMALL CELL LUNG CANCER RECURRENT
     Dosage: 220 MILLIGRAM/DAY
     Route: 041
  9. THYRADIN S [Suspect]
     Active Substance: LEVOTHYROXINE SODIUM
     Indication: PRODUCT USED FOR UNKNOWN INDICATION
     Dosage: 150 MICROGRAM/DAY
     Route: 048
  10. THYRADIN S [Suspect]
     Active Substance: LEVOTHYROXINE SODIUM
     Indication: PRODUCT USED FOR UNKNOWN INDICATION
     Dosage: 125 MICROGRAM/DAY
     Route: 048
  11. CORTRIL [Suspect]
     Active Substance: HYDROCORTISONE
     Indication: ADRENAL INSUFFICIENCY
     Dosage: 15 MILLIGRAM/DAY
     Route: 048

REACTIONS (3)
  - Hypokalaemia [Unknown]
  - Adrenal insufficiency [Unknown]
  - Hypothyroidism [Unknown]
